FAERS Safety Report 26030624 (Version 3)
Quarter: 2025Q4

REPORT INFORMATION
  Report Type: Spontaneous
  Country: US (occurrence: US)
  Receive Date: 20251112
  Receipt Date: 20251229
  Transmission Date: 20260118
  Serious: No
  Sender: TOLMAR
  Company Number: US-Tolmar-TLM-2025-08212

PATIENT

DRUGS (2)
  1. ELIGARD [Suspect]
     Active Substance: LEUPROLIDE ACETATE
     Indication: Prostate cancer
     Dosage: BOX: 15350CUS EXP: 11-2026?SYRINGE A: 15350AUS EXP: 12-2026?SYRINGE B: 15350BUS EXP: 11-2026?NDC: 62
  2. DEVICE [Suspect]
     Active Substance: DEVICE
     Indication: Prostate cancer
     Dosage: BOX: 15350CUS EXP: 11-2026?SYRINGE A: 15350AUS EXP: 12-2026?SYRINGE B: 15350BUS EXP: 11-2026?NDC: 62

REACTIONS (4)
  - Intercepted product preparation error [Unknown]
  - Wrong technique in product usage process [Unknown]
  - Product packaging quantity issue [Unknown]
  - Product quality issue [Unknown]
